FAERS Safety Report 16677673 (Version 1)
Quarter: 2019Q3

REPORT INFORMATION
  Report Type: Spontaneous
  Country: DE (occurrence: DE)
  Receive Date: 20190807
  Receipt Date: 20190807
  Transmission Date: 20191004
  Serious: No
  Sender: FDA-Public Use
  Company Number: DE-HORMOSAN PHARMA GMBH-2018-05160

PATIENT
  Sex: Female
  Weight: 59 kg

DRUGS (1)
  1. LEVETIRACETAM-HORMOSAN 500 MG FILMTABLETTEN [Suspect]
     Active Substance: LEVETIRACETAM
     Indication: PRODUCT USED FOR UNKNOWN INDICATION
     Dosage: UNK
     Route: 065

REACTIONS (19)
  - Pruritus [Unknown]
  - Personality disorder [Unknown]
  - Restlessness [Unknown]
  - Lethargy [Unknown]
  - Cognitive disorder [Unknown]
  - Headache [Unknown]
  - Tremor [Unknown]
  - Nausea [Unknown]
  - General physical condition abnormal [Unknown]
  - Muscle spasms [Unknown]
  - Fatigue [Unknown]
  - Insomnia [Unknown]
  - Aphasia [Unknown]
  - Constipation [Unknown]
  - Listless [Unknown]
  - Aggression [Unknown]
  - Muscle atrophy [Unknown]
  - Dizziness [Unknown]
  - Loss of libido [Unknown]
